FAERS Safety Report 19886006 (Version 1)
Quarter: 2021Q3

REPORT INFORMATION
  Report Type: Spontaneous
  Country: FR (occurrence: FR)
  Receive Date: 20210927
  Receipt Date: 20210927
  Transmission Date: 20211014
  Serious: Yes (Other)
  Sender: FDA-Public Use
  Company Number: FR-PFIZER INC-202101211790

PATIENT
  Age: 44 Year
  Sex: Female

DRUGS (1)
  1. CRIZOTINIB [Suspect]
     Active Substance: CRIZOTINIB
     Indication: LUNG ADENOCARCINOMA
     Dosage: UNK
     Dates: start: 2016

REACTIONS (2)
  - Neoplasm progression [Unknown]
  - Pericardial effusion [Unknown]

NARRATIVE: CASE EVENT DATE: 202103
